FAERS Safety Report 9982173 (Version 1)
Quarter: 2014Q1

REPORT INFORMATION
  Report Type: Report from Study
  Country: US (occurrence: US)
  Receive Date: 20140307
  Receipt Date: 20140307
  Transmission Date: 20141002
  Serious: No
  Sender: FDA-Public Use
  Company Number: US-ABBVIE-13P-163-1178445-00

PATIENT
  Age: 71 Year
  Sex: Male
  Weight: 93.07 kg

DRUGS (11)
  1. HUMIRA [Suspect]
     Indication: PSORIATIC ARTHROPATHY
     Route: 058
     Dates: start: 20131101, end: 20131205
  2. HUMIRA [Suspect]
     Route: 058
     Dates: start: 20131206
  3. METFORMIN [Concomitant]
     Indication: DIABETES MELLITUS
  4. CARVEDILOL [Concomitant]
     Indication: MYOCARDIAL INFARCTION
  5. LISINOPRIL [Concomitant]
     Indication: MYOCARDIAL INFARCTION
  6. LEVOTHYROXINE [Concomitant]
     Indication: PRODUCT USED FOR UNKNOWN INDICATION
  7. ISOSORBIDE MONONITRATE [Concomitant]
     Indication: MYOCARDIAL INFARCTION
  8. ATORVASTATIN [Concomitant]
     Indication: BLOOD CHOLESTEROL INCREASED
  9. VITAMIN D [Concomitant]
     Indication: VITAMIN SUPPLEMENTATION
  10. CITRUCEL [Concomitant]
     Indication: PRODUCT USED FOR UNKNOWN INDICATION
  11. CLONAZEPAM [Concomitant]
     Indication: INSOMNIA

REACTIONS (3)
  - Dysstasia [Recovering/Resolving]
  - Psoriasis [Recovering/Resolving]
  - Arthralgia [Recovering/Resolving]
